FAERS Safety Report 8604947 (Version 6)
Quarter: 2013Q1

REPORT INFORMATION
  Report Type: Report from Study
  Country: CA (occurrence: CA)
  Receive Date: 20120608
  Receipt Date: 20130207
  Transmission Date: 20140127
  Serious: Yes (Death, Hospitalization, Other)
  Sender: FDA-Public Use
  Company Number: CA-ROCHE-1074814

PATIENT
  Age: 60 None
  Sex: Male

DRUGS (7)
  1. AVASTIN [Suspect]
     Indication: GLIOBLASTOMA
     Route: 042
     Dates: start: 20080918
  2. AVASTIN [Suspect]
     Route: 042
     Dates: start: 20100729
  3. AVASTIN [Suspect]
     Route: 042
     Dates: start: 20101124
  4. AVASTIN [Suspect]
     Route: 042
     Dates: start: 20101216
  5. AVASTIN [Suspect]
     Route: 042
     Dates: start: 20110901
  6. AVASTIN [Suspect]
     Route: 042
     Dates: start: 20120816
  7. AVASTIN [Suspect]
     Route: 042
     Dates: start: 20120906, end: 20121129

REACTIONS (5)
  - Death [Fatal]
  - Neoplasm recurrence [Not Recovered/Not Resolved]
  - Neoplasm [Unknown]
  - Disease progression [Unknown]
  - Hypertension [Unknown]
